FAERS Safety Report 6439964-3 (Version None)
Quarter: 2009Q4

REPORT INFORMATION
  Report Type: 
  Country: None (occurrence: None)
  Receive Date: 20091113
  Receipt Date: 20090916
  Transmission Date: 20100525
  Serious: Yes (Other)
  Sender: FDA-Public Use
  Company Number: BR-PFIZER INC-2009205199

PATIENT
  Age: 49 Year
  Sex: Female
  Weight: 75 kg

DRUGS (7)
  1. FRONTAL XR [Suspect]
     Indication: ANXIETY
     Dosage: 2.0 MG, 1X/DAY
     Route: 048
     Dates: start: 20060101
  2. FRONTAL XR [Suspect]
     Dosage: 1.0 MG, 1X/DAY
  3. SERTRALINE HCL [Suspect]
     Dosage: UNK
     Dates: start: 20090316
  4. LORAZEPAM [Suspect]
     Dosage: 2 MG, UNK
  5. BROMAZEPAM [Suspect]
  6. AMLODIPINE BESILATE [Concomitant]
     Dosage: UNK
  7. CYMBALTA [Concomitant]
     Dosage: UNK
     Dates: start: 20060101, end: 20060101

REACTIONS (13)
  - ARTHRALGIA [None]
  - BLOOD CHOLESTEROL INCREASED [None]
  - DIZZINESS [None]
  - DRUG DEPENDENCE [None]
  - DRUG EFFECT DELAYED [None]
  - DRUG WITHDRAWAL SYNDROME [None]
  - DYSPNOEA [None]
  - EYE PAIN [None]
  - FEELING ABNORMAL [None]
  - NASAL CONGESTION [None]
  - NASAL SEPTUM DEVIATION [None]
  - PULMONARY CONGESTION [None]
  - WEIGHT INCREASED [None]
